FAERS Safety Report 24143789 (Version 1)
Quarter: 2024Q3

REPORT INFORMATION
  Report Type: Report from Study
  Country: US (occurrence: US)
  Receive Date: 20240727
  Receipt Date: 20240727
  Transmission Date: 20241017
  Serious: Yes (Other)
  Sender: ABBVIE
  Company Number: US-ABBVIE-5853913

PATIENT
  Sex: Female

DRUGS (1)
  1. RINVOQ [Suspect]
     Active Substance: UPADACITINIB
     Indication: Product used for unknown indication
     Route: 048
     Dates: start: 20240401

REACTIONS (6)
  - Deafness unilateral [Not Recovered/Not Resolved]
  - Arthralgia [Recovering/Resolving]
  - Tinnitus [Unknown]
  - Pain in extremity [Unknown]
  - Arthralgia [Unknown]
  - Malaise [Unknown]

NARRATIVE: CASE EVENT DATE: 20240101
